FAERS Safety Report 5752960-4 (Version None)
Quarter: 2008Q2

REPORT INFORMATION
  Report Type: 
  Country: None (occurrence: None)
  Receive Date: 20080527
  Receipt Date: 20080513
  Transmission Date: 20081010
  Serious: Yes (Death, Hospitalization)
  Sender: FDA-Public Use
  Company Number: 056-C5013-08021417

PATIENT
  Age: 83 Year
  Sex: Male
  Weight: 71 kg

DRUGS (9)
  1. CC-5013 (LENALIDOMIDE) (CAPSULES) [Suspect]
     Indication: 5Q-SYNDROME
     Dosage: 10 MG, 1 IN 1 D, ORAL; 5 MG, 1 IN 1 D, ORAL
     Route: 048
     Dates: start: 20070409, end: 20070501
  2. CC-5013 (LENALIDOMIDE) (CAPSULES) [Suspect]
     Indication: 5Q-SYNDROME
     Dosage: 10 MG, 1 IN 1 D, ORAL; 5 MG, 1 IN 1 D, ORAL
     Route: 048
     Dates: start: 20070510, end: 20070830
  3. TRANSFUSION (RED BLOOD CELLS) [Concomitant]
  4. PANTOPRAZOLE SODIUM [Concomitant]
  5. PREVISCAN (FLUINDIONE) [Concomitant]
  6. DIGOXIN [Concomitant]
  7. LAMALINE (LAMALINE) [Concomitant]
  8. FORLAX (MACROGOL) [Concomitant]
  9. XALATAN [Concomitant]

REACTIONS (17)
  - ANAEMIA [None]
  - ANGINA PECTORIS [None]
  - ANXIETY [None]
  - ASTHENIA [None]
  - CLOSTRIDIUM DIFFICILE SEPSIS [None]
  - CONDITION AGGRAVATED [None]
  - DRUG EFFECT DECREASED [None]
  - DYSPNOEA EXERTIONAL [None]
  - ENTEROCOLITIS INFECTIOUS [None]
  - ESCHERICHIA BACTERAEMIA [None]
  - HALLUCINATION, VISUAL [None]
  - MYELODYSPLASTIC SYNDROME [None]
  - NEUTROPENIA [None]
  - ORAL FUNGAL INFECTION [None]
  - SCAB [None]
  - TACHYPNOEA [None]
  - THROMBOCYTOPENIA [None]
